FAERS Safety Report 6517180-4 (Version None)
Quarter: 2009Q4

REPORT INFORMATION
  Report Type: 
  Country: None (occurrence: None)
  Receive Date: 20091223
  Receipt Date: 20091118
  Transmission Date: 20100525
  Serious: No
  Sender: FDA-Public Use
  Company Number: B0614214A

PATIENT
  Age: 31 Year
  Sex: Female

DRUGS (5)
  1. ZANAMIVIR [Suspect]
     Indication: H1N1 INFLUENZA
     Dosage: 600MG TWICE PER DAY
     Route: 042
     Dates: start: 20091103, end: 20091108
  2. OSELTAMIVIR [Concomitant]
  3. OXYGEN [Concomitant]
  4. ANTIBIOTICS [Concomitant]
  5. PARACETAMOL [Concomitant]

REACTIONS (6)
  - ABORTION INDUCED [None]
  - BLOOD ALKALINE PHOSPHATASE INCREASED [None]
  - DRUG EXPOSURE DURING PREGNANCY [None]
  - GAMMA-GLUTAMYLTRANSFERASE INCREASED [None]
  - LEUKOCYTOSIS [None]
  - PLATELET COUNT INCREASED [None]
